FAERS Safety Report 8167004-7 (Version None)
Quarter: 2012Q1

REPORT INFORMATION
  Report Type: 
  Country: None (occurrence: None)
  Receive Date: 20120227
  Receipt Date: 20120216
  Transmission Date: 20120608
  Serious: Yes (Hospitalization, Other)
  Sender: FDA-Public Use
  Company Number: US-BAYER-2012-015329

PATIENT
  Age: 19 Year
  Sex: Female

DRUGS (1)
  1. ACETYLSALICYLIC ACID SRT [Suspect]
     Dosage: 100 DF, ONCE
     Route: 048

REACTIONS (12)
  - FOETAL DISTRESS SYNDROME [None]
  - AGITATION [None]
  - TACHYPNOEA [None]
  - CONFUSIONAL STATE [None]
  - MECONIUM IN AMNIOTIC FLUID [None]
  - HAEMATEMESIS [None]
  - TINNITUS [None]
  - TACHYCARDIA [None]
  - PREMATURE LABOUR [None]
  - ALKALOSIS [None]
  - FOETAL HEART RATE DECELERATION [None]
  - FOETAL HEART RATE ABNORMAL [None]
